FAERS Safety Report 15987042 (Version 1)
Quarter: 2019Q1

REPORT INFORMATION
  Report Type: Spontaneous
  Country: DE (occurrence: DE)
  Receive Date: 20190220
  Receipt Date: 20190220
  Transmission Date: 20190418
  Serious: Yes (Other)
  Sender: FDA-Public Use
  Company Number: DE-PFIZER INC-2019070402

PATIENT
  Age: 75 Year
  Sex: Male
  Weight: 178 kg

DRUGS (4)
  1. EZETROL [Suspect]
     Active Substance: EZETIMIBE
     Dosage: UNK
     Route: 048
     Dates: start: 2014
  2. ATORVASTATIN CALCIUM. [Suspect]
     Active Substance: ATORVASTATIN CALCIUM
     Indication: CEREBROVASCULAR ACCIDENT
     Dosage: UNK (10MG - 40MG)
     Route: 048
     Dates: start: 2010
  3. PRAVASTATIN. [Suspect]
     Active Substance: PRAVASTATIN
     Indication: CEREBROVASCULAR ACCIDENT
     Dosage: UNK (20MG - 40MG)
     Route: 048
     Dates: start: 2012
  4. ROSUVASTATIN. [Concomitant]
     Active Substance: ROSUVASTATIN
     Dosage: 10 MG, UNK
     Route: 048
     Dates: start: 2019

REACTIONS (2)
  - Lipoprotein (a) increased [Unknown]
  - Myalgia [Recovering/Resolving]
